FAERS Safety Report 10853564 (Version 1)
Quarter: 2015Q1

REPORT INFORMATION
  Report Type: Spontaneous
  Country: None (occurrence: None)
  Receive Date: 20150218
  Receipt Date: 20150218
  Transmission Date: 20150721
  Serious: No
  Sender: FDA-Public Use
  Company Number: None

PATIENT
  Age: 48 Year
  Sex: Female

DRUGS (1)
  1. HUMIRA [Suspect]
     Active Substance: ADALIMUMAB
     Indication: CROHN^S DISEASE
     Dosage: 5 YEARS AGO TO CURRENT
     Route: 058

REACTIONS (4)
  - Abdominal distension [None]
  - Arthralgia [None]
  - Abdominal pain upper [None]
  - Crohn^s disease [None]
